FAERS Safety Report 5855655-1 (Version None)
Quarter: 2008Q3

REPORT INFORMATION
  Report Type: 
  Country: None (occurrence: None)
  Receive Date: 20080823
  Receipt Date: 20080815
  Transmission Date: 20090109
  Serious: Yes (Hospitalization, Other)
  Sender: FDA-Public Use
  Company Number: CA-ELI_LILLY_AND_COMPANY-CA200807005250

PATIENT
  Sex: Female

DRUGS (3)
  1. HUMATROPE [Suspect]
     Indication: HYPOTHALAMO-PITUITARY DISORDER
     Dosage: UNK, UNK
     Dates: start: 19980101
  2. NOVOLOG [Concomitant]
     Indication: TYPE 1 DIABETES MELLITUS
  3. LANTUS [Concomitant]
     Indication: TYPE 1 DIABETES MELLITUS

REACTIONS (5)
  - BLOOD GLUCOSE ABNORMAL [None]
  - DEMENTIA [None]
  - FALL [None]
  - SEPSIS [None]
  - URINARY TRACT INFECTION [None]
